FAERS Safety Report 4368939-3 (Version None)
Quarter: 2004Q2

REPORT INFORMATION
  Report Type: 
  Country: None (occurrence: None)
  Receive Date: 20040527
  Receipt Date: 20040512
  Transmission Date: 20050107
  Serious: Yes (Other)
  Sender: FDA-Public Use
  Company Number: USA040567409

PATIENT
  Age: 64 Year
  Sex: Female

DRUGS (7)
  1. HUMALOG [Suspect]
     Indication: DIABETES MELLITUS INSULIN-DEPENDENT
     Dosage: 3 U OTHER
     Route: 050
     Dates: start: 19990101
  2. LANTUS [Concomitant]
  3. AGGRENOX [Concomitant]
  4. PRAVACHOL [Concomitant]
  5. ACTONEL [Concomitant]
  6. FOSINOPRIL SODIUM [Concomitant]
  7. ALBUTEROL [Concomitant]

REACTIONS (5)
  - BLOOD GLUCOSE DECREASED [None]
  - BLOOD GLUCOSE INCREASED [None]
  - CORONARY ARTERY SURGERY [None]
  - PHARMACEUTICAL PRODUCT COMPLAINT [None]
  - TRANSIENT ISCHAEMIC ATTACK [None]
